FAERS Safety Report 20899834 (Version 2)
Quarter: 2022Q2

REPORT INFORMATION
  Report Type: Report from Study
  Country: US (occurrence: US)
  Receive Date: 20220601
  Receipt Date: 20220624
  Transmission Date: 20220721
  Serious: Yes (Hospitalization, Other)
  Sender: FDA-Public Use
  Company Number: US-GILEAD-2022-0583631

PATIENT
  Sex: Female

DRUGS (5)
  1. AMBRISENTAN [Suspect]
     Active Substance: AMBRISENTAN
     Indication: Pulmonary arterial hypertension
     Dosage: 10 MG, QD
     Route: 065
     Dates: start: 20140211
  2. ADCIRCA [Concomitant]
     Active Substance: TADALAFIL
  3. FERROUS SULFATE [Concomitant]
     Active Substance: FERROUS SULFATE
  4. PANTOPRAZOLE [Concomitant]
     Active Substance: PANTOPRAZOLE
  5. TADALAFIL [Concomitant]
     Active Substance: TADALAFIL

REACTIONS (2)
  - Internal haemorrhage [Unknown]
  - Gastric haemorrhage [Not Recovered/Not Resolved]
